FAERS Safety Report 11628139 (Version 1)
Quarter: 2015Q4

REPORT INFORMATION
  Report Type: Spontaneous
  Country: US (occurrence: US)
  Receive Date: 20151014
  Receipt Date: 20151014
  Transmission Date: 20160304
  Serious: Yes (Other)
  Sender: FDA-Public Use
  Company Number: US-ACTAVIS-2015-21089

PATIENT
  Age: 77 Year
  Sex: Female

DRUGS (3)
  1. CARBOPLATIN (WATSON LABORATORIES) [Suspect]
     Active Substance: CARBOPLATIN
     Indication: OVARIAN CANCER
     Dosage: SINGLE CYCLE
     Route: 065
     Dates: start: 20140304, end: 20140304
  2. CARBOPLATIN (WATSON LABORATORIES) [Suspect]
     Active Substance: CARBOPLATIN
     Dosage: UNK FOR SIX CYCLES
     Route: 065
     Dates: start: 20091211, end: 20100414
  3. TAXOL [Suspect]
     Active Substance: PACLITAXEL
     Indication: OVARIAN CANCER
     Dosage: UNK FOR SIX CYCLES
     Route: 065
     Dates: start: 20091211, end: 20100414

REACTIONS (3)
  - Ovarian cancer recurrent [Unknown]
  - Anaemia [Unknown]
  - Toxicity to various agents [Unknown]

NARRATIVE: CASE EVENT DATE: 201403
